FAERS Safety Report 18207432 (Version 1)
Quarter: 2020Q3

REPORT INFORMATION
  Report Type: Spontaneous
  Country: US (occurrence: US)
  Receive Date: 20200827
  Receipt Date: 20200827
  Transmission Date: 20201103
  Serious: Yes (Hospitalization)
  Sender: FDA-Public Use
  Company Number: None

PATIENT
  Age: 62 Year
  Sex: Female
  Weight: 117.03 kg

DRUGS (2)
  1. PROMACTA [Suspect]
     Active Substance: ELTROMBOPAG OLAMINE
     Indication: IMMUNE THROMBOCYTOPENIA
     Route: 002
     Dates: start: 20200428, end: 20200504
  2. PROMACTA [Concomitant]
     Active Substance: ELTROMBOPAG OLAMINE
     Dates: start: 20200428, end: 20200504

REACTIONS (3)
  - Hepatic cirrhosis [None]
  - Hypothyroidism [None]
  - Diverticulitis [None]

NARRATIVE: CASE EVENT DATE: 20200827
